FAERS Safety Report 5474018-4 (Version None)
Quarter: 2007Q4

REPORT INFORMATION
  Report Type: 
  Country: None (occurrence: None)
  Receive Date: 20071002
  Receipt Date: 20070925
  Transmission Date: 20080405
  Serious: Yes (Death, Other)
  Sender: FDA-Public Use
  Company Number: PHHO2007MX13757

PATIENT
  Age: 74 Year
  Sex: Female

DRUGS (2)
  1. DIOVAN HCT [Suspect]
     Indication: HYPERTENSION
     Dosage: 160MG/25MG DAILY
     Route: 048
     Dates: start: 20060301
  2. DIOVAN [Suspect]
     Dosage: 80 MG, QD
     Route: 048

REACTIONS (2)
  - DEATH [None]
  - NEOPLASM MALIGNANT [None]
